FAERS Safety Report 5028294-2 (Version None)
Quarter: 2006Q2

REPORT INFORMATION
  Report Type: 
  Country: None (occurrence: None)
  Receive Date: 20060612
  Receipt Date: 20060526
  Transmission Date: 20061013
  Serious: Yes (Hospitalization, Disabling)
  Sender: FDA-Public Use
  Company Number: 401271

PATIENT
  Age: 29 Year
  Sex: Female
  Weight: 68 kg

DRUGS (5)
  1. ACCUTANE [Suspect]
     Indication: ROSACEA
     Dosage: 20 MG DAILY ORAL
     Route: 048
     Dates: start: 19961002, end: 19970601
  2. METRONIDAZOLE CREAM (METORNIDAZOLE) [Concomitant]
  3. NOVACET LOTION (SULFACETAMIDE SODIUM/SULFUR) [Concomitant]
  4. SUMYCIN (TETRACYCLINE HYDROCHLORIDE) [Concomitant]
  5. TRI-CYCLEN (ETHINYL ESTRADIOL/NORGESTREL) [Concomitant]

REACTIONS (57)
  - ABDOMINAL DISTENSION [None]
  - ABDOMINAL PAIN [None]
  - ABDOMINAL PAIN UPPER [None]
  - ALOPECIA [None]
  - ANAEMIA [None]
  - ANORECTAL DISORDER [None]
  - ANOREXIA [None]
  - ANTIBODY TEST POSITIVE [None]
  - ANTINUCLEAR ANTIBODY POSITIVE [None]
  - APHTHOUS STOMATITIS [None]
  - ARTHRALGIA [None]
  - ARTHRITIS [None]
  - AURICULAR SWELLING [None]
  - CELLULITIS [None]
  - CHONDRITIS [None]
  - COLITIS [None]
  - COLITIS ULCERATIVE [None]
  - CONSTIPATION [None]
  - CROHN'S DISEASE [None]
  - DEFAECATION URGENCY [None]
  - DIARRHOEA [None]
  - DRUG EXPOSURE BEFORE PREGNANCY [None]
  - DRUG EXPOSURE DURING PREGNANCY [None]
  - DRY EYE [None]
  - DYSFUNCTIONAL UTERINE BLEEDING [None]
  - DYSPEPSIA [None]
  - EAR PAIN [None]
  - ENTEROCOLITIS INFECTIOUS [None]
  - FAECES DISCOLOURED [None]
  - FATIGUE [None]
  - GASTRITIS [None]
  - GASTROINTESTINAL DISORDER [None]
  - GASTROINTESTINAL HAEMORRHAGE [None]
  - GASTROOESOPHAGEAL REFLUX DISEASE [None]
  - GROIN ABSCESS [None]
  - HAEMATOCHEZIA [None]
  - HAEMORRHOIDAL HAEMORRHAGE [None]
  - HAEMORRHOIDS [None]
  - INFLAMMATORY BOWEL DISEASE [None]
  - INTESTINAL HAEMORRHAGE [None]
  - MOUTH ULCERATION [None]
  - MULTI-ORGAN DISORDER [None]
  - NASAL DRYNESS [None]
  - NAUSEA [None]
  - NIGHT BLINDNESS [None]
  - OESOPHAGITIS [None]
  - OSTEOPENIA [None]
  - PLATELET COUNT INCREASED [None]
  - POLYCHONDRITIS [None]
  - POSTNASAL DRIP [None]
  - PREGNANCY [None]
  - PROCTALGIA [None]
  - PROCTITIS [None]
  - RECTAL HAEMORRHAGE [None]
  - TEARFULNESS [None]
  - VOMITING [None]
  - WHITE BLOOD CELL COUNT INCREASED [None]
